FAERS Safety Report 10923815 (Version 2)
Quarter: 2015Q2

REPORT INFORMATION
  Report Type: Spontaneous
  Country: US (occurrence: US)
  Receive Date: 20150318
  Receipt Date: 20150526
  Transmission Date: 20150821
  Serious: No
  Sender: FDA-Public Use
  Company Number: US-JNJFOC-20140419251

PATIENT

DRUGS (4)
  1. ANTICOAGULANTS [Suspect]
     Active Substance: UNSPECIFIED INGREDIENT
     Indication: CAROTID ENDARTERECTOMY
     Route: 065
  2. ALL OTHER THERAPEUTIC PRODUCTS [Suspect]
     Active Substance: UNSPECIFIED INGREDIENT
     Indication: HAEMOSTASIS
     Route: 065
  3. LOCAL HAEMOSTATICS [Concomitant]
     Active Substance: UNSPECIFIED INGREDIENT
     Indication: HAEMOSTASIS
     Route: 065
     Dates: start: 20140424
  4. EVICEL [Suspect]
     Active Substance: FIBRINOGEN HUMAN\THROMBIN HUMAN
     Indication: HAEMOSTASIS
     Route: 061
     Dates: start: 20140424, end: 20140424

REACTIONS (1)
  - Mydriasis [Recovering/Resolving]

NARRATIVE: CASE EVENT DATE: 20140424
